FAERS Safety Report 25347238 (Version 2)
Quarter: 2025Q2

REPORT INFORMATION
  Report Type: Spontaneous
  Country: GR (occurrence: GR)
  Receive Date: 20250522
  Receipt Date: 20250624
  Transmission Date: 20250716
  Serious: No
  Sender: PFIZER
  Company Number: GR-PFIZER INC-PV202500055801

PATIENT
  Age: 12 Year
  Sex: Male
  Weight: 39 kg

DRUGS (2)
  1. GENOTROPIN [Suspect]
     Active Substance: SOMATROPIN
     Indication: Growth hormone deficiency
     Dosage: 1.1MG X 3DAYS + 1.0MG X 2 DAYS - TOTAL 7.5MG / 7 DAYS / 5.3MG PEN
     Route: 058
     Dates: start: 201809
  2. FOLIC ACID [Concomitant]
     Active Substance: FOLIC ACID
     Indication: Thalassaemia minor
     Dosage: 5 MG, WEEKLY

REACTIONS (8)
  - Incorrect dose administered by device [Unknown]
  - Device use issue [Unknown]
  - Device delivery system issue [Unknown]
  - Injection site pain [Not Recovered/Not Resolved]
  - Injection site mass [Not Recovered/Not Resolved]
  - Product prescribing issue [Unknown]
  - Lack of administration site rotation [Unknown]
  - Product communication issue [Unknown]

NARRATIVE: CASE EVENT DATE: 20250401
